FAERS Safety Report 10834539 (Version 1)
Quarter: 2015Q1

REPORT INFORMATION
  Report Type: Report from Study
  Country: US (occurrence: US)
  Receive Date: 20150219
  Receipt Date: 20150219
  Transmission Date: 20150721
  Serious: Yes (Other)
  Sender: FDA-Public Use
  Company Number: US-ABBVIE-14P-163-1213074-00

PATIENT
  Sex: Male

DRUGS (3)
  1. HUMIRA [Suspect]
     Active Substance: ADALIMUMAB
     Indication: COLITIS ULCERATIVE
     Dates: start: 201307, end: 201307
  2. HUMIRA [Suspect]
     Active Substance: ADALIMUMAB
     Dates: start: 201307, end: 201307
  3. HUMIRA [Suspect]
     Active Substance: ADALIMUMAB
     Dates: start: 201308, end: 20140306

REACTIONS (2)
  - Rash macular [Not Recovered/Not Resolved]
  - Lupus-like syndrome [Recovered/Resolved]
